FAERS Safety Report 24742013 (Version 1)
Quarter: 2024Q4

REPORT INFORMATION
  Report Type: Spontaneous
  Country: PL (occurrence: PL)
  Receive Date: 20241217
  Receipt Date: 20241217
  Transmission Date: 20250115
  Serious: Yes (Hospitalization, Other)
  Sender: TEVA
  Company Number: None

PATIENT
  Sex: Male

DRUGS (5)
  1. DOCETAXEL [Suspect]
     Active Substance: DOCETAXEL
     Indication: Prostate cancer
     Dosage: UNK UNK, UNKNOWN FREQ.: FORMULATION UNKNOWN
     Route: 065
     Dates: start: 20190327
  2. FLUTAMIDE [Suspect]
     Active Substance: FLUTAMIDE
     Indication: Prostate cancer
     Dosage: UNK UNK, UNKNOWN FREQ. (90 TABLETS 3X1)
     Route: 065
  3. ENZALUTAMIDE [Suspect]
     Active Substance: ENZALUTAMIDE
     Indication: Prostate cancer
     Dosage: UNK UNK, MONTHLY: FORMULATION UNKNOWN
     Route: 065
     Dates: start: 20211214, end: 202206
  4. XOFIGO [Suspect]
     Active Substance: RADIUM RA-223 DICHLORIDE
     Indication: Prostate cancer
     Dosage: UNK UNK, UNKNOWN FREQ.: FORMULATION UNKNOWN
     Route: 065
  5. ELIGARD [Suspect]
     Active Substance: LEUPROLIDE ACETATE
     Indication: Prostate cancer
     Route: 065

REACTIONS (6)
  - Urinary retention [Recovered/Resolved]
  - Haematuria [Recovered/Resolved]
  - Bladder tamponade [Recovered/Resolved]
  - Anaemia [Unknown]
  - Prostate cancer [Unknown]
  - Prostatic specific antigen increased [Unknown]

NARRATIVE: CASE EVENT DATE: 20220801
